FAERS Safety Report 18381659 (Version 1)
Quarter: 2020Q4

REPORT INFORMATION
  Report Type: Spontaneous
  Country: IT (occurrence: IT)
  Receive Date: 20201014
  Receipt Date: 20201014
  Transmission Date: 20210114
  Serious: Yes (Hospitalization)
  Sender: FDA-Public Use
  Company Number: IT-SAMSUNG BIOEPIS-SB-2020-30899

PATIENT
  Age: 30 Year
  Sex: Male
  Weight: 82 kg

DRUGS (1)
  1. IMRALDI [Suspect]
     Active Substance: ADALIMUMAB
     Indication: AXIAL SPONDYLOARTHRITIS
     Route: 058
     Dates: start: 20200707

REACTIONS (5)
  - Product substitution issue [Unknown]
  - Transient ischaemic attack [Recovering/Resolving]
  - Axial spondyloarthritis [Recovering/Resolving]
  - Drug ineffective [Recovering/Resolving]
  - Loss of consciousness [Recovering/Resolving]

NARRATIVE: CASE EVENT DATE: 20200804
